FAERS Safety Report 5923016-2 (Version None)
Quarter: 2008Q4

REPORT INFORMATION
  Report Type: 
  Country: None (occurrence: None)
  Receive Date: 20081018
  Receipt Date: 20081006
  Transmission Date: 20090506
  Serious: Yes (Life-Threatening, Other)
  Sender: FDA-Public Use
  Company Number: JP-PFIZER INC-2008080538

PATIENT
  Sex: Male

DRUGS (5)
  1. ZOLOFT [Suspect]
     Dosage: DAILY DOSE:25MG
     Route: 048
     Dates: start: 20080908, end: 20080912
  2. SOLANAX [Suspect]
     Dosage: DAILY DOSE:.8MG
     Dates: start: 20080731
  3. NEUROTROPIN [Concomitant]
     Route: 048
     Dates: start: 20080710
  4. DEPAS [Concomitant]
     Route: 048
     Dates: start: 20080710
  5. MEDICON [Concomitant]
     Route: 048
     Dates: start: 20080731, end: 20080829

REACTIONS (4)
  - FEELING ABNORMAL [None]
  - HOMICIDAL IDEATION [None]
  - MENTAL DISORDER [None]
  - SUICIDAL IDEATION [None]
